FAERS Safety Report 7581943-7 (Version None)
Quarter: 2011Q2

REPORT INFORMATION
  Report Type: 
  Country: None (occurrence: None)
  Receive Date: 20110629
  Receipt Date: 20110624
  Transmission Date: 20111010
  Serious: Yes (Life-Threatening)
  Sender: FDA-Public Use
  Company Number: US-CELGENEUS-163-21880-11063422

PATIENT
  Sex: Male

DRUGS (14)
  1. DEXILANT [Concomitant]
     Dosage: 60 MILLIGRAM
     Route: 065
  2. SIMVASTATIN [Concomitant]
     Dosage: 40 MILLIGRAM
     Route: 065
  3. ACYCLOVIR [Concomitant]
     Dosage: 400 MILLIGRAM
     Route: 065
  4. AMIODARONE HCL [Concomitant]
     Dosage: 200 MILLIGRAM
     Route: 065
  5. ASPIRIN [Concomitant]
     Dosage: 325 MILLIGRAM
     Route: 065
  6. AVODART [Concomitant]
     Dosage: 5 MILLIGRAM
     Route: 065
  7. DECADRON [Concomitant]
     Route: 065
  8. FOLIC ACID [Concomitant]
     Dosage: 1 MILLIGRAM
     Route: 065
  9. REGLAN [Concomitant]
     Dosage: 10 MILLIGRAM
     Route: 065
  10. COUMADIN [Concomitant]
     Dosage: 2.5 MILLIGRAM
     Route: 065
  11. MULTIPLE VITAMIN [Concomitant]
     Route: 065
  12. REVLIMID [Suspect]
     Indication: MULTIPLE MYELOMA
     Route: 048
     Dates: start: 20100601
  13. ASPIRIN [Concomitant]
     Dosage: 325 MILLIGRAM
     Route: 065
  14. ACYCLOVIR [Concomitant]
     Dosage: 400 MILLIGRAM
     Route: 065

REACTIONS (2)
  - EXTRASYSTOLES [None]
  - VENTRICULAR TACHYCARDIA [None]
